FAERS Safety Report 12034418 (Version 1)
Quarter: 2016Q1

REPORT INFORMATION
  Report Type: Report from Study
  Country: US (occurrence: US)
  Receive Date: 20160207
  Receipt Date: 20160207
  Transmission Date: 20160526
  Serious: Yes (Other)
  Sender: FDA-Public Use
  Company Number: US-ABBVIE-15K-163-1520260-00

PATIENT
  Age: 61 Year
  Sex: Male

DRUGS (1)
  1. HUMIRA [Suspect]
     Active Substance: ADALIMUMAB
     Indication: CROHN^S DISEASE
     Route: 058
     Dates: start: 20151029

REACTIONS (16)
  - Anxiety [Unknown]
  - Insomnia [Unknown]
  - Increased tendency to bruise [Unknown]
  - Depressed mood [Unknown]
  - Disturbance in attention [Unknown]
  - Fear [Unknown]
  - Accident [Unknown]
  - Respiratory tract congestion [Unknown]
  - Diarrhoea [Unknown]
  - Squamous cell carcinoma [Unknown]
  - Asthenia [Unknown]
  - Vision blurred [Unknown]
  - Rash macular [Unknown]
  - Headache [Unknown]
  - Nausea [Unknown]
  - Abdominal pain [Unknown]

NARRATIVE: CASE EVENT DATE: 20151207
